FAERS Safety Report 18776233 (Version 1)
Quarter: 2021Q1

REPORT INFORMATION
  Report Type: Spontaneous
  Country: US (occurrence: US)
  Receive Date: 20210123
  Receipt Date: 20210123
  Transmission Date: 20210419
  Serious: No
  Sender: FDA-Public Use
  Company Number: US-009507513-2101USA009575

PATIENT
  Age: 34 Year
  Sex: Female
  Weight: 86.17 kg

DRUGS (1)
  1. NEXPLANON [Suspect]
     Active Substance: ETONOGESTREL
     Indication: CONTRACEPTION
     Dosage: 1 ROD/3 YEARS, UPPER LEFT ARM
     Route: 059
     Dates: start: 20180904

REACTIONS (8)
  - Weight increased [Not Recovered/Not Resolved]
  - Back pain [Not Recovered/Not Resolved]
  - Muscular weakness [Not Recovered/Not Resolved]
  - Influenza like illness [Not Recovered/Not Resolved]
  - Back disorder [Not Recovered/Not Resolved]
  - Pain in extremity [Not Recovered/Not Resolved]
  - Implant site pain [Not Recovered/Not Resolved]
  - Fatigue [Not Recovered/Not Resolved]

NARRATIVE: CASE EVENT DATE: 201809
